FAERS Safety Report 19360635 (Version 2)
Quarter: 2021Q2

REPORT INFORMATION
  Report Type: Spontaneous
  Country: GB (occurrence: GB)
  Receive Date: 20210601
  Receipt Date: 20210602
  Transmission Date: 20210717
  Serious: Yes (Death)
  Sender: FDA-Public Use
  Company Number: GB-PUMA BIOTECHNOLOGY, LTD.-2021-PUM-GB003522

PATIENT

DRUGS (62)
  1. NERLYNX [Suspect]
     Active Substance: NERATINIB
     Indication: HER2 POSITIVE BREAST CANCER
     Dosage: 40 MILLIGRAM, QD
     Route: 065
     Dates: start: 20170901
  2. ERIBULIN MESILATE [Suspect]
     Active Substance: ERIBULIN
     Dosage: 140 MILLIGRAM, Q3WK
     Route: 042
     Dates: start: 20160215, end: 20160215
  3. AMLODIPINE [Concomitant]
     Active Substance: AMLODIPINE BESYLATE
     Indication: LOWER RESPIRATORY TRACT INFECTION
     Dosage: 500 MILLIGRAM, QD
     Route: 048
     Dates: start: 20151218, end: 20151225
  4. AMLODIPINE [Concomitant]
     Active Substance: AMLODIPINE BESYLATE
     Indication: PROPHYLAXIS
     Dosage: 10 MILLIGRAM, QD
     Route: 048
     Dates: start: 20160406, end: 20160421
  5. AMLODIPINE [Concomitant]
     Active Substance: AMLODIPINE BESYLATE
     Dosage: 2 PERCENT, QD
     Route: 061
     Dates: start: 20160620, end: 20160624
  6. CO?AMOXICLAV [Concomitant]
     Active Substance: AMOXICILLIN\CLAVULANATE POTASSIUM
     Dosage: 1875 MILLIGRAM, QD
     Route: 048
     Dates: start: 20170222, end: 20170228
  7. TAZOCIN [Concomitant]
     Active Substance: PIPERACILLIN SODIUM\TAZOBACTAM SODIUM
     Indication: LOWER RESPIRATORY TRACT INFECTION
     Dosage: UNK
     Route: 042
     Dates: start: 20170213, end: 20170215
  8. LOPERAMIDE [Concomitant]
     Active Substance: LOPERAMIDE
     Indication: DIARRHOEA
     Dosage: 2 MILLIGRAM, AS NECESSARY
     Route: 065
     Dates: start: 20170901, end: 20171124
  9. ERIBULIN MESILATE [Suspect]
     Active Substance: ERIBULIN
     Indication: BREAST CANCER METASTATIC
     Dosage: 1.5 MILLIGRAM, Q2WK
     Route: 042
  10. ERIBULIN MESILATE [Suspect]
     Active Substance: ERIBULIN
     Dosage: 240 MILLIGRAM, QD
     Route: 048
     Dates: start: 20180223, end: 20180420
  11. ERIBULIN MESILATE [Suspect]
     Active Substance: ERIBULIN
     Dosage: 60 MILLIGRAM, UNK
     Route: 048
     Dates: start: 20180608, end: 20180810
  12. ERIBULIN MESILATE [Suspect]
     Active Substance: ERIBULIN
     Dosage: 60 MILLIGRAM
     Route: 048
     Dates: start: 20180530, end: 20180608
  13. AMLODIPINE [Concomitant]
     Active Substance: AMLODIPINE BESYLATE
     Dosage: UNK
     Route: 042
     Dates: start: 20170213, end: 201702
  14. FILGRASTIM [Concomitant]
     Active Substance: FILGRASTIM
     Indication: PRODUCT USED FOR UNKNOWN INDICATION
     Dosage: 300 MICROGRAM, QD
     Route: 058
     Dates: start: 20150725, end: 20150730
  15. FILGRASTIM [Concomitant]
     Active Substance: FILGRASTIM
     Dosage: 300 MICROGRAM, EVERY DAY FOR 3 DAYS STARTING ON DAYS 3 AND 11
     Route: 058
     Dates: start: 20160421, end: 20160712
  16. DOCETAXEL. [Concomitant]
     Active Substance: DOCETAXEL
     Indication: HER2 POSITIVE BREAST CANCER
     Dosage: 108 MILLIGRAM, Q3WK
     Route: 065
     Dates: start: 20150602, end: 20150602
  17. GENTAMICIN. [Concomitant]
     Active Substance: GENTAMICIN
     Indication: LOWER RESPIRATORY TRACT INFECTION
     Dosage: UNK
     Route: 065
     Dates: start: 20170213, end: 201702
  18. RED BLOOD CELLS, CONCENTRATED [Concomitant]
     Active Substance: HUMAN RED BLOOD CELL
     Dosage: 2 UNIT, QD
     Route: 065
     Dates: start: 20180526, end: 20180526
  19. MUPIROCIN. [Concomitant]
     Active Substance: MUPIROCIN
     Dosage: 6 PERCENT, QD
     Route: 065
     Dates: start: 20160620, end: 20160624
  20. TRASTUZUMAB. [Suspect]
     Active Substance: TRASTUZUMAB
     Dosage: 300 MILLIGRAM, Q3WK
     Route: 042
     Dates: start: 20150629, end: 20151102
  21. PERTUZUMAB. [Suspect]
     Active Substance: PERTUZUMAB
     Indication: HER2 POSITIVE BREAST CANCER
     Dosage: 420 MILLIGRAM, Q3WK, TARGETED THERAPY
     Route: 065
     Dates: start: 20150622, end: 20151102
  22. AMLODIPINE [Concomitant]
     Active Substance: AMLODIPINE BESYLATE
     Indication: DIARRHOEA
     Dosage: 1000 MILLIGRAM, QD
     Route: 048
     Dates: start: 20151218, end: 20151225
  23. AMLODIPINE [Concomitant]
     Active Substance: AMLODIPINE BESYLATE
     Dosage: 30 MILLIGRAM, QD
     Route: 048
     Dates: start: 20160406, end: 20160421
  24. AMLODIPINE [Concomitant]
     Active Substance: AMLODIPINE BESYLATE
     Dosage: 2 UNIT, QD
     Route: 042
     Dates: start: 20160702, end: 20160702
  25. MEROPENEM. [Concomitant]
     Active Substance: MEROPENEM
     Indication: LOWER RESPIRATORY TRACT INFECTION
     Dosage: UNK
     Route: 065
     Dates: start: 20170215, end: 20170221
  26. NERLYNX [Suspect]
     Active Substance: NERATINIB
     Dosage: 240 MILLIGRAM, QD
     Route: 065
     Dates: start: 20180223, end: 20180420
  27. ERIBULIN MESILATE [Suspect]
     Active Substance: ERIBULIN
     Indication: HER2 POSITIVE BREAST CANCER
     Dosage: 1.5 MILLIGRAM, Q3WK
     Route: 042
     Dates: start: 20160411
  28. ERIBULIN MESILATE [Suspect]
     Active Substance: ERIBULIN
     Dosage: 840 MILLIGRAM, UNK, LOADING DOSE
     Route: 042
  29. ERIBULIN MESILATE [Suspect]
     Active Substance: ERIBULIN
     Dosage: 108 MILLIGRAM, Q3WK
     Route: 042
     Dates: start: 20150602, end: 20150602
  30. TRASTUZUMAB. [Suspect]
     Active Substance: TRASTUZUMAB
     Dosage: 350 MILLIGRAM, UNK, LOADING DOSE
     Route: 042
     Dates: start: 20150601
  31. TRASTUZUMAB. [Suspect]
     Active Substance: TRASTUZUMAB
     Dosage: 140 MILLIGRAM, Q3WK
     Route: 042
     Dates: start: 20160215, end: 20160215
  32. CAPECITABINE. [Suspect]
     Active Substance: CAPECITABINE
     Indication: HER2 POSITIVE BREAST CANCER
     Dosage: 1500 MILLIGRAM, QD
     Route: 048
     Dates: start: 20170210, end: 20170728
  33. TRASTUZUMAB EMTANSINE [Suspect]
     Active Substance: ADO-TRASTUZUMAB EMTANSINE
     Indication: BREAST CANCER METASTATIC
     Dosage: 140 MILLIGRAM, Q3WK
     Route: 065
     Dates: start: 20160215, end: 20160215
  34. AMLODIPINE [Concomitant]
     Active Substance: AMLODIPINE BESYLATE
     Indication: BLOOD FOLATE DECREASED
     Dosage: 10 MILLIGRAM
     Route: 048
  35. AMLODIPINE [Concomitant]
     Active Substance: AMLODIPINE BESYLATE
     Dosage: 6 PERCENT, QD
     Route: 061
     Dates: start: 20160620, end: 20160624
  36. MUPIROCIN. [Concomitant]
     Active Substance: MUPIROCIN
     Indication: PROPHYLAXIS
     Dosage: 2 PERCENT, QD
     Route: 065
     Dates: start: 20160620, end: 20160624
  37. NERLYNX [Suspect]
     Active Substance: NERATINIB
     Dosage: 240 MILLIGRAM, QD
     Route: 065
     Dates: start: 20170901, end: 20180216
  38. VINORELBINE [Suspect]
     Active Substance: VINORELBINE TARTRATE
     Indication: HER2 POSITIVE BREAST CANCER
     Dosage: 60 MILLIGRAM, UNK
     Route: 065
     Dates: start: 20180608, end: 20180810
  39. ERIBULIN MESILATE [Suspect]
     Active Substance: ERIBULIN
     Dosage: 420 MILLIGRAM, Q3WK, TARGETED THERAPY
     Route: 042
     Dates: start: 20150622, end: 20151102
  40. ERIBULIN MESILATE [Suspect]
     Active Substance: ERIBULIN
     Dosage: 86 MILLIGRAM, Q3WK, DOSE DISCONTINUED
     Route: 042
     Dates: start: 20150629, end: 20150720
  41. PERTUZUMAB. [Suspect]
     Active Substance: PERTUZUMAB
     Indication: BREAST CANCER METASTATIC
     Dosage: 840 MILLIGRAM, UNK, LOADING DOSE
     Route: 065
  42. TRASTUZUMAB EMTANSINE [Suspect]
     Active Substance: ADO-TRASTUZUMAB EMTANSINE
     Indication: HER2 POSITIVE BREAST CANCER
     Dosage: 172 MILLIGRAM, Q3WK
     Route: 065
     Dates: start: 20151201
  43. AMLODIPINE [Concomitant]
     Active Substance: AMLODIPINE BESYLATE
     Dosage: 5 MILLIGRAM, QD
     Route: 048
     Dates: start: 20150828, end: 201708
  44. AMLODIPINE [Concomitant]
     Active Substance: AMLODIPINE BESYLATE
     Dosage: 2 UNIT, QD
     Route: 042
     Dates: start: 20180526, end: 20180526
  45. SANDO K [Concomitant]
     Indication: NUTRITIONAL SUPPLEMENTATION
     Dosage: UNK UNK, BID (2/DAY)
     Route: 048
     Dates: start: 20150828, end: 20150830
  46. CIPROFLOXACIN. [Concomitant]
     Active Substance: CIPROFLOXACIN
     Dosage: 1000 MILLIGRAM, QD
     Route: 065
     Dates: start: 20151218, end: 20151225
  47. DOMPERIDONE [Concomitant]
     Active Substance: DOMPERIDONE
     Indication: PRODUCT USED FOR UNKNOWN INDICATION
     Dosage: 10 MILLIGRAM, QD
     Route: 065
     Dates: start: 20160406, end: 20160421
  48. FOLIC ACID. [Concomitant]
     Active Substance: FOLIC ACID
     Indication: BLOOD FOLATE DECREASED
     Dosage: 5 MILLIGRAM, QD
     Route: 065
     Dates: start: 20150828, end: 201708
  49. ERIBULIN MESILATE [Suspect]
     Active Substance: ERIBULIN
     Dosage: 40 MILLIGRAM, QD
     Route: 048
     Dates: start: 20170901
  50. ERIBULIN MESILATE [Suspect]
     Active Substance: ERIBULIN
     Dosage: 240 MILLIGRAM, QD
     Route: 048
     Dates: start: 20170901, end: 20180216
  51. AMLODIPINE [Concomitant]
     Active Substance: AMLODIPINE BESYLATE
     Dosage: UNK
     Route: 042
     Dates: start: 20170215, end: 20170221
  52. CIPROFLOXACIN. [Concomitant]
     Active Substance: CIPROFLOXACIN
     Indication: PRODUCT USED FOR UNKNOWN INDICATION
     Dosage: 500 MILLIGRAM, QD
     Route: 065
     Dates: start: 20151218, end: 20151225
  53. DOMPERIDONE [Concomitant]
     Active Substance: DOMPERIDONE
     Dosage: 30 MILLIGRAM, QD
     Route: 065
     Dates: start: 20160406, end: 20160421
  54. TRASTUZUMAB. [Suspect]
     Active Substance: TRASTUZUMAB
     Indication: BREAST CANCER METASTATIC
     Dosage: 172 MILLIGRAM, Q3WK
     Route: 042
     Dates: start: 20151201, end: 20151221
  55. CAPECITABINE. [Suspect]
     Active Substance: CAPECITABINE
     Dosage: 3000 MILLIGRAM, QD
     Route: 048
     Dates: start: 20170210
  56. AMLODIPINE [Concomitant]
     Active Substance: AMLODIPINE BESYLATE
     Dosage: 2 MILLIGRAM, AS NECESSARY
     Route: 048
     Dates: start: 20170901, end: 20171124
  57. CO?AMOXICLAV [Concomitant]
     Active Substance: AMOXICILLIN\CLAVULANATE POTASSIUM
     Indication: LOWER RESPIRATORY TRACT INFECTION
     Dosage: 625 MILLIGRAM, QD
     Route: 048
     Dates: start: 20170222, end: 20170228
  58. DOCETAXEL. [Concomitant]
     Active Substance: DOCETAXEL
     Indication: BREAST CANCER METASTATIC
     Dosage: 86 MILLIGRAM, Q3WK, DOSE DISCONTINUED
     Route: 065
     Dates: start: 20150629, end: 20150720
  59. RED BLOOD CELLS, CONCENTRATED [Concomitant]
     Active Substance: HUMAN RED BLOOD CELL
     Indication: PRODUCT USED FOR UNKNOWN INDICATION
     Dosage: 2 UNIT, QD
     Route: 065
     Dates: start: 20160702, end: 20160702
  60. VINORELBINE [Suspect]
     Active Substance: VINORELBINE TARTRATE
     Dosage: 60 MILLIGRAM
     Route: 065
     Dates: start: 20180530, end: 20180608
  61. ERIBULIN MESILATE [Suspect]
     Active Substance: ERIBULIN
     Dosage: 172 MILLIGRAM, Q3WK
     Route: 042
     Dates: start: 20151201
  62. TRASTUZUMAB. [Suspect]
     Active Substance: TRASTUZUMAB
     Indication: HER2 POSITIVE BREAST CANCER
     Dosage: UNK, Q3WK, DOSE REDUCED
     Route: 042

REACTIONS (5)
  - Disease progression [Fatal]
  - Decreased appetite [Recovered/Resolved]
  - Hypoaesthesia [Unknown]
  - Fatigue [Recovered/Resolved]
  - Off label use [Unknown]

NARRATIVE: CASE EVENT DATE: 20180525
